FAERS Safety Report 18357641 (Version 1)
Quarter: 2020Q4

REPORT INFORMATION
  Report Type: Spontaneous
  Country: BR (occurrence: BR)
  Receive Date: 20201007
  Receipt Date: 20201007
  Transmission Date: 20210114
  Serious: Yes (Other)
  Sender: FDA-Public Use
  Company Number: BR-B.I. PHARMACEUTICALS,INC./RIDGEFIELD-2020-BI-052501

PATIENT
  Age: 36 Year
  Sex: Female
  Weight: 96 kg

DRUGS (3)
  1. DIPIRONA [Suspect]
     Active Substance: METAMIZOLE
     Indication: PRODUCT USED FOR UNKNOWN INDICATION
     Dosage: 30 TABLETS, SINGLE DOSE FREQUENCY: 1, FREQUENCY UNIT: 809
     Route: 048
     Dates: start: 20200930, end: 20200930
  2. BEROTEC [Suspect]
     Active Substance: FENOTEROL HYDROBROMIDE
     Indication: PRODUCT USED FOR UNKNOWN INDICATION
     Dosage: 1 VIAL, SINGLE DOSE FREQUENCY: 1, FREQUENCY UNIT: 809
     Route: 048
     Dates: start: 20200930, end: 20200930
  3. ATROVENT [Suspect]
     Active Substance: IPRATROPIUM BROMIDE
     Indication: PRODUCT USED FOR UNKNOWN INDICATION
     Dosage: 2 VIALS, SINGLE DOSE FREQUENCY: 1, FREQUENCY UNIT: 809
     Route: 048
     Dates: start: 20200930, end: 20200930

REACTIONS (3)
  - Intentional overdose [Recovered/Resolved]
  - Suicide attempt [Recovered/Resolved]
  - Hypertension [Recovered/Resolved]

NARRATIVE: CASE EVENT DATE: 20200930
